FAERS Safety Report 5835121-X (Version None)
Quarter: 2008Q3

REPORT INFORMATION
  Report Type: 
  Country: None (occurrence: None)
  Receive Date: 20080806
  Receipt Date: 20080728
  Transmission Date: 20090109
  Serious: Yes (Hospitalization)
  Sender: FDA-Public Use
  Company Number: US-JNJFOC-20080500844

PATIENT
  Sex: Female

DRUGS (16)
  1. LEVAQUIN [Suspect]
     Indication: SEPSIS
     Route: 042
  2. LEVAQUIN [Suspect]
     Indication: URINARY TRACT INFECTION
     Route: 042
  3. LEVAQUIN [Suspect]
     Indication: KIDNEY INFECTION
     Route: 042
  4. LEVAQUIN [Suspect]
     Route: 048
  5. LEVAQUIN [Suspect]
     Route: 048
  6. LEVAQUIN [Suspect]
     Route: 048
  7. VERAPAMIL [Interacting]
     Indication: BLOOD PRESSURE
  8. DYAZIDE [Concomitant]
     Indication: DIURETIC THERAPY
  9. FEMAKA [Concomitant]
     Indication: BREAST CANCER
  10. ASPIRIN [Concomitant]
     Indication: ANTICOAGULANT THERAPY
  11. CALCIUM [Concomitant]
     Indication: NUTRITIONAL SUPPORT
  12. FEMARA [Concomitant]
  13. METFORMIN HCL [Concomitant]
  14. ASPIRIN [Concomitant]
  15. CIPROFLOXACIN [Concomitant]
  16. PRILOSEC [Concomitant]

REACTIONS (5)
  - ADAMS-STOKES SYNDROME [None]
  - ATRIOVENTRICULAR BLOCK [None]
  - DRUG INTERACTION [None]
  - FALL [None]
  - TENDON DISORDER [None]
